FAERS Safety Report 11162180 (Version 1)
Quarter: 2015Q2

REPORT INFORMATION
  Report Type: Spontaneous
  Country: US (occurrence: US)
  Receive Date: 20150604
  Receipt Date: 20150604
  Transmission Date: 20150821
  Serious: No
  Sender: FDA-Public Use
  Company Number: US-SA-2014SA127517

PATIENT
  Sex: Female

DRUGS (2)
  1. LANTUS [Suspect]
     Active Substance: INSULIN GLARGINE
     Route: 065
  2. NOVOLOG [Concomitant]
     Active Substance: INSULIN ASPART

REACTIONS (8)
  - Skin hypertrophy [Unknown]
  - Peripheral swelling [Unknown]
  - Insomnia [Unknown]
  - Injection site urticaria [Unknown]
  - Rash generalised [Unknown]
  - Lip swelling [Unknown]
  - Pruritus [Unknown]
  - Swelling face [Unknown]
